FAERS Safety Report 7434760-2 (Version None)
Quarter: 2011Q2

REPORT INFORMATION
  Report Type: 
  Country: None (occurrence: None)
  Receive Date: 20110425
  Receipt Date: 20110415
  Transmission Date: 20111010
  Serious: Yes (Hospitalization, Other)
  Sender: FDA-Public Use
  Company Number: KR-BAXTER-2011BH012020

PATIENT
  Age: 71 Year
  Sex: Male

DRUGS (2)
  1. METRONIDAZOLE [Suspect]
     Indication: ENTEROCOLITIS INFECTIOUS
     Route: 042
  2. METRONIDAZOLE [Suspect]
     Indication: ENTEROCOLITIS INFECTIOUS
     Route: 048

REACTIONS (4)
  - SLOW RESPONSE TO STIMULI [None]
  - POSTERIOR REVERSIBLE ENCEPHALOPATHY SYNDROME [None]
  - SOMNOLENCE [None]
  - TOXIC ENCEPHALOPATHY [None]
